FAERS Safety Report 20256297 (Version 1)
Quarter: 2021Q4

REPORT INFORMATION
  Report Type: Spontaneous
  Country: US (occurrence: US)
  Receive Date: 20211230
  Receipt Date: 20211230
  Transmission Date: 20220303
  Serious: Yes (Other)
  Sender: FDA-Public Use
  Company Number: US-PURDUE-USA-2020-0229983

PATIENT

DRUGS (1)
  1. OXYCONTIN [Suspect]
     Active Substance: OXYCODONE HYDROCHLORIDE
     Indication: Pain
     Dosage: 40 MG, TID
     Route: 048

REACTIONS (5)
  - Drug dependence [Unknown]
  - Disturbance in attention [Unknown]
  - Pain [Unknown]
  - Somnolence [Unknown]
  - Amnesia [Unknown]

NARRATIVE: CASE EVENT DATE: 20110801
